FAERS Safety Report 4391879-0 (Version None)
Quarter: 2004Q3

REPORT INFORMATION
  Report Type: 
  Country: None (occurrence: None)
  Receive Date: 20040702
  Receipt Date: 20040413
  Transmission Date: 20050211
  Serious: Yes (Hospitalization)
  Sender: FDA-Public Use
  Company Number: 2004UW06186

PATIENT
  Age: 50 Year
  Sex: Male

DRUGS (4)
  1. CRESTOR [Suspect]
     Dosage: 10  MG PO
     Route: 048
     Dates: start: 20040101, end: 20040324
  2. DIOVAN [Concomitant]
  3. ZOCOR [Concomitant]
  4. INSULIN [Concomitant]

REACTIONS (2)
  - BLOOD CREATINE PHOSPHOKINASE INCREASED [None]
  - PNEUMONIA [None]
